FAERS Safety Report 8094500-3 (Version None)
Quarter: 2012Q1

REPORT INFORMATION
  Report Type: 
  Country: None (occurrence: None)
  Receive Date: 20120131
  Receipt Date: 20120125
  Transmission Date: 20120608
  Serious: Yes (Other)
  Sender: FDA-Public Use
  Company Number: US-PFIZER INC-2012020910

PATIENT
  Sex: Male
  Weight: 85.261 kg

DRUGS (6)
  1. TOVIAZ [Suspect]
     Indication: MICTURITION DISORDER
     Dosage: 8 MG, UNK
     Dates: start: 20111201
  2. PROTONIX [Concomitant]
     Dosage: 40 MG, DAILY
  3. MONOPRIL [Concomitant]
     Dosage: 10 MG, DAILY
  4. ALLOPURINOL [Concomitant]
     Dosage: 300 MG, DAILY
  5. AMBIEN [Concomitant]
     Dosage: 10 MG, AS NEEDED
  6. VALIUM [Concomitant]
     Dosage: 10 MG, AS NEEDED

REACTIONS (2)
  - DRY MOUTH [None]
  - DIARRHOEA [None]
